FAERS Safety Report 16439159 (Version 2)
Quarter: 2019Q3

REPORT INFORMATION
  Report Type: Spontaneous
  Country: SK (occurrence: SK)
  Receive Date: 20190617
  Receipt Date: 20190705
  Transmission Date: 20191004
  Serious: Yes (Other)
  Sender: FDA-Public Use
  Company Number: SK-ALK-ABELLO A/S-2019AA002107

PATIENT

DRUGS (2)
  1. ACARIZAX 12 SQ-HDM [Suspect]
     Active Substance: DERMATOPHAGOIDES FARINAE\DERMATOPHAGOIDES PTERONYSSINUS
     Indication: RHINITIS PERENNIAL
     Dosage: 12 SQ-HDM
     Dates: start: 20181018, end: 20190218
  2. ACARIZAX 12 SQ-HDM [Suspect]
     Active Substance: DERMATOPHAGOIDES FARINAE\DERMATOPHAGOIDES PTERONYSSINUS
     Indication: ASTHMA

REACTIONS (6)
  - Paraesthesia oral [Recovered/Resolved]
  - Ear pruritus [Recovered/Resolved]
  - Mouth swelling [Recovered/Resolved]
  - Lip oedema [Recovered/Resolved]
  - Oral pruritus [Recovered/Resolved]
  - Angioedema [Recovered/Resolved]

NARRATIVE: CASE EVENT DATE: 20181024
